FAERS Safety Report 8245815-7 (Version None)
Quarter: 2012Q1

REPORT INFORMATION
  Report Type: 
  Country: None (occurrence: None)
  Receive Date: 20120330
  Receipt Date: 20120322
  Transmission Date: 20120608
  Serious: No
  Sender: FDA-Public Use
  Company Number: US-BIOGENIDEC-2012BI010185

PATIENT

DRUGS (1)
  1. AVONEX [Suspect]
     Indication: MULTIPLE SCLEROSIS
     Route: 030
     Dates: start: 20100301

REACTIONS (11)
  - LOSS OF CONTROL OF LEGS [None]
  - AGGRESSION [None]
  - HYPOAESTHESIA [None]
  - NAUSEA [None]
  - COORDINATION ABNORMAL [None]
  - DELIRIUM TREMENS [None]
  - DEPRESSION [None]
  - PAIN [None]
  - FEELING ABNORMAL [None]
  - DEHYDRATION [None]
  - DIARRHOEA [None]
